FAERS Safety Report 19511447 (Version 4)
Quarter: 2021Q3

REPORT INFORMATION
  Report Type: Report from Study
  Country: BE (occurrence: BE)
  Receive Date: 20210709
  Receipt Date: 20210918
  Transmission Date: 20211014
  Serious: Yes (Hospitalization, Other)
  Sender: FDA-Public Use
  Company Number: BE-TAKEDA-2021TUS041458

PATIENT
  Age: 61 Year
  Sex: Male
  Weight: 73.6 kg

DRUGS (17)
  1. ZYLORIC [Concomitant]
     Active Substance: ALLOPURINOL
     Indication: PROPHYLAXIS
     Dosage: 300 MILLIGRAM, QD
     Route: 048
     Dates: start: 20210525
  2. ACICLOVIR [Concomitant]
     Active Substance: ACYCLOVIR
     Indication: HERPES SIMPLEX
     Dosage: 800 MILLIGRAM, QD
     Route: 048
     Dates: start: 20210525
  3. MOXIFLOXACINE [Concomitant]
     Active Substance: MOXIFLOXACIN
     Indication: RHINORRHOEA
  4. TECLISTAMAB. [Suspect]
     Active Substance: TECLISTAMAB
     Indication: PLASMA CELL MYELOMA
     Dosage: 720 MICROGRAM/KILOGRAM
     Route: 065
     Dates: start: 20210526
  5. LENALIDOMIDE [Concomitant]
     Active Substance: LENALIDOMIDE
     Indication: PLASMA CELL MYELOMA
     Dosage: 25 MILLIGRAM
     Route: 065
     Dates: start: 20210615
  6. MOVICOL PLAIN [Concomitant]
     Active Substance: POLYETHYLENE GLYCOL 3350\POTASSIUM CHLORIDE\SODIUM BICARBONATE\SODIUM CHLORIDE
     Indication: CONSTIPATION
     Dosage: UNK, QD
     Route: 048
     Dates: start: 20210602
  7. MOXIFLOXACINE [Concomitant]
     Active Substance: MOXIFLOXACIN
     Indication: RESPIRATORY TRACT INFECTION
  8. MOXIFLOXACINE [Concomitant]
     Active Substance: MOXIFLOXACIN
     Indication: DYSPHONIA
     Dosage: 400 MILLIGRAM, QD
     Route: 048
     Dates: start: 20210712
  9. PRIVIGEN [Concomitant]
     Active Substance: HUMAN IMMUNOGLOBULIN G
     Indication: PROPHYLAXIS
     Dosage: UNK, MONTHLY
     Route: 042
  10. BIFITERAL [Concomitant]
     Active Substance: LACTULOSE
     Indication: CONSTIPATION
     Dosage: 3.33 GRAM, QD
     Route: 048
     Dates: start: 20210530
  11. ASAFLOW [Concomitant]
     Active Substance: ASPIRIN
     Indication: BLOOD DISORDER
     Dosage: 80 MILLIGRAM, QD
     Route: 048
     Dates: start: 20210615, end: 20210803
  12. PARACETAMOL [Concomitant]
     Active Substance: ACETAMINOPHEN
     Indication: MUSCULOSKELETAL CHEST PAIN
     Dosage: 1 GRAM, QD
     Route: 048
     Dates: start: 20210701, end: 20210701
  13. BORTEZOMIB. [Suspect]
     Active Substance: BORTEZOMIB
     Indication: PLASMA CELL MYELOMA
     Dosage: 2.4 MILLIGRAM
     Route: 065
     Dates: start: 20210525
  14. DARATUMUMAB [Suspect]
     Active Substance: DARATUMUMAB
     Indication: PLASMA CELL MYELOMA
     Dosage: 1800 MILLIGRAM
     Route: 058
     Dates: start: 20210525
  15. DIFLUCAN [Concomitant]
     Active Substance: FLUCONAZOLE
     Indication: FUNGAL INFECTION
     Dosage: 200 MILLIGRAM, QD
     Route: 048
     Dates: start: 20210525
  16. TRAMADOL. [Concomitant]
     Active Substance: TRAMADOL
     Indication: MUSCULOSKELETAL CHEST PAIN
     Dosage: 50 MILLIGRAM, QD
     Route: 048
     Dates: start: 20210701, end: 20210701
  17. AMOXICILLIN CLAVULANIC ACID KABI [Concomitant]
     Indication: PYREXIA
     Dosage: 875 MILLIGRAM, TID
     Route: 048
     Dates: start: 20210618

REACTIONS (1)
  - Cytokine release syndrome [Recovering/Resolving]

NARRATIVE: CASE EVENT DATE: 20210618
